FAERS Safety Report 9527797 (Version 4)
Quarter: 2014Q2

REPORT INFORMATION
  Report Type: Spontaneous
  Country: US (occurrence: US)
  Receive Date: 20130917
  Receipt Date: 20140416
  Transmission Date: 20141212
  Serious: Yes (Other)
  Sender: FDA-Public Use
  Company Number: US-ASTRAZENECA-2013SE68118

PATIENT
  Age: 981 Month
  Sex: Female
  Weight: 72.6 kg

DRUGS (4)
  1. SYMBICORT [Suspect]
     Indication: CHRONIC OBSTRUCTIVE PULMONARY DISEASE
     Dosage: 80/4.5, UNKNOWN
     Route: 055
     Dates: start: 20120513, end: 201212
  2. SYMBICORT [Suspect]
     Indication: CHRONIC OBSTRUCTIVE PULMONARY DISEASE
     Dosage: 160/4.5 UG, 2 PUFFS TWICE DAILY
     Route: 055
     Dates: start: 20121207
  3. TRAVATAN Z [Concomitant]
     Indication: EYE DISORDER
     Dosage: 0.004- 1 DROP EACH HS
  4. ALPHAGAN [Concomitant]
     Indication: EYE DISORDER

REACTIONS (16)
  - Bronchitis [Recovered/Resolved]
  - Macular degeneration [Unknown]
  - Eye disorder [Not Recovered/Not Resolved]
  - Sciatica [Recovered/Resolved]
  - Arthralgia [Recovered/Resolved]
  - Upper-airway cough syndrome [Not Recovered/Not Resolved]
  - Productive cough [Unknown]
  - Joint injury [Unknown]
  - Malaise [Unknown]
  - Injury associated with device [Unknown]
  - Sinus disorder [Unknown]
  - Body height decreased [Unknown]
  - Nervousness [Unknown]
  - Nervousness [Unknown]
  - Cough [Recovered/Resolved]
  - Anxiety [Unknown]
